FAERS Safety Report 6583767-6 (Version None)
Quarter: 2010Q1

REPORT INFORMATION
  Report Type: 
  Country: None (occurrence: None)
  Receive Date: 20100213
  Receipt Date: 20100213
  Transmission Date: 20100710
  Serious: Yes (Other)
  Sender: FDA-Public Use
  Company Number: None

PATIENT
  Age: 27 Year
  Sex: Male

DRUGS (1)
  1. LAMICTAL [Suspect]
     Indication: BIPOLAR I DISORDER
     Dosage: 400 MG DAILY PO
     Route: 048
     Dates: start: 20050101

REACTIONS (3)
  - ATAXIA [None]
  - CONFUSIONAL STATE [None]
  - DIZZINESS POSTURAL [None]
